FAERS Safety Report 8560363-2 (Version None)
Quarter: 2012Q3

REPORT INFORMATION
  Report Type: 
  Country: None (occurrence: None)
  Receive Date: 20120802
  Receipt Date: 20120801
  Transmission Date: 20120928
  Serious: Yes (Hospitalization)
  Sender: FDA-Public Use
  Company Number: US-PFIZER INC-2012187027

PATIENT
  Sex: Male
  Weight: 91.61 kg

DRUGS (3)
  1. NORVASC [Suspect]
     Dosage: 5 MG, 2X/DAY
     Route: 048
     Dates: start: 20050101
  2. LIPITOR [Suspect]
     Dosage: 80 MG, DAILY
     Dates: start: 20050101
  3. VIAGRA [Suspect]
     Dosage: 100 MG, AS NEEDED
     Dates: start: 20050101

REACTIONS (1)
  - MYOCARDIAL INFARCTION [None]
